FAERS Safety Report 9751880 (Version 1)
Quarter: 2013Q4

REPORT INFORMATION
  Report Type: Report from Study
  Country: US (occurrence: US)
  Receive Date: 20131213
  Receipt Date: 20131213
  Transmission Date: 20140711
  Serious: Yes (Other)
  Sender: FDA-Public Use
  Company Number: US-ROCHE-1312803

PATIENT
  Sex: Female
  Weight: 68.7 kg

DRUGS (4)
  1. NUTROPIN AQ [Suspect]
     Indication: GROWTH HORMONE DEFICIENCY
     Route: 058
  2. CYCLOSPORINE [Concomitant]
     Dosage: MORNING DOSE
     Route: 048
  3. CYCLOSPORINE [Concomitant]
     Dosage: AFTERNOON DOSE
     Route: 048
  4. PROTOPIC OINTMENT [Concomitant]

REACTIONS (4)
  - Abnormal behaviour [Unknown]
  - Drug dose omission [Unknown]
  - Weight increased [Unknown]
  - Eczema [Unknown]
